FAERS Safety Report 7927756-5 (Version None)
Quarter: 2011Q4

REPORT INFORMATION
  Report Type: 
  Country: None (occurrence: None)
  Receive Date: 20111118
  Receipt Date: 20110829
  Transmission Date: 20120403
  Serious: Yes (Hospitalization)
  Sender: FDA-Public Use
  Company Number: US-BRISTOL-MYERS SQUIBB COMPANY-15965551

PATIENT
  Sex: Female

DRUGS (2)
  1. METFORMIN HCL [Suspect]
     Route: 065
  2. METFORMIN HCL [Suspect]

REACTIONS (6)
  - CHEST PAIN [None]
  - HEADACHE [None]
  - MALAISE [None]
  - ABNORMAL FAECES [None]
  - PAIN IN EXTREMITY [None]
  - ABDOMINAL PAIN UPPER [None]
